FAERS Safety Report 15477034 (Version 1)
Quarter: 2018Q4

REPORT INFORMATION
  Report Type: Report from Study
  Country: FR (occurrence: FR)
  Receive Date: 20181009
  Receipt Date: 20181009
  Transmission Date: 20190205
  Serious: Yes (Hospitalization)
  Sender: FDA-Public Use
  Company Number: FR-ROCHE-2192677

PATIENT
  Age: 78 Year
  Sex: Male

DRUGS (4)
  1. CARBOPLATIN. [Suspect]
     Active Substance: CARBOPLATIN
     Indication: METASTATIC RENAL CELL CARCINOMA
     Dosage: MOST RECENT DOSE (460 MG) OF CARBOPLATIN PRIOR TO SAE: 13/SEP/2018
     Route: 042
     Dates: start: 20180913
  2. GEMCITABINE [Suspect]
     Active Substance: GEMCITABINE\GEMCITABINE HYDROCHLORIDE
     Indication: METASTATIC RENAL CELL CARCINOMA
     Dosage: MOST RECENT DOSE (2400 MG) OF GEMCITABINE PRIOR TO SAE: 13/SEP/2018
     Route: 042
     Dates: start: 20180913
  3. BEVACIZUMAB. [Suspect]
     Active Substance: BEVACIZUMAB
     Indication: METASTATIC RENAL CELL CARCINOMA
     Dosage: MOST RECENT DOSE (15 MG/KG) OF BEVACIZUMAB PRIOR TO SAE: 13/SEP/2018?BEVACIZUMAB 15MG/KG EVERY 21 DA
     Route: 042
     Dates: start: 20180913
  4. ZARZIO [Concomitant]
     Active Substance: FILGRASTIM
     Route: 058
     Dates: start: 20180918

REACTIONS (4)
  - Platelet count decreased [Not Recovered/Not Resolved]
  - Haematotoxicity [Not Recovered/Not Resolved]
  - Anaemia [Not Recovered/Not Resolved]
  - Neutropenia [Not Recovered/Not Resolved]

NARRATIVE: CASE EVENT DATE: 20180927
